FAERS Safety Report 12913972 (Version 1)
Quarter: 2016Q4

REPORT INFORMATION
  Report Type: Spontaneous
  Country: US (occurrence: US)
  Receive Date: 20161104
  Receipt Date: 20161104
  Transmission Date: 20170207
  Serious: Yes (Hospitalization, Other)
  Sender: FDA-Public Use
  Company Number: US-BAUSCH-BL-2016-025809

PATIENT
  Age: 49 Year
  Sex: Male

DRUGS (1)
  1. GLUMETZA [Suspect]
     Active Substance: METFORMIN HYDROCHLORIDE
     Indication: DIABETES MELLITUS
     Route: 065
     Dates: start: 201604

REACTIONS (3)
  - Diabetes mellitus [Unknown]
  - Cyst [Unknown]
  - Infection [Unknown]

NARRATIVE: CASE EVENT DATE: 2016
